FAERS Safety Report 23884688 (Version 1)
Quarter: 2024Q2

REPORT INFORMATION
  Report Type: Spontaneous
  Country: US (occurrence: US)
  Receive Date: 20240522
  Receipt Date: 20240522
  Transmission Date: 20240716
  Serious: Yes (Other)
  Sender: FDA-Public Use
  Company Number: US-TAKEDA-2024TUS048170

PATIENT
  Sex: Female

DRUGS (1)
  1. FRUZAQLA [Suspect]
     Active Substance: FRUQUINTINIB
     Indication: Product used for unknown indication
     Dosage: UNK
     Route: 065

REACTIONS (10)
  - Neoplasm malignant [Unknown]
  - Tongue ulceration [Unknown]
  - Pain [Unknown]
  - Hypophagia [Unknown]
  - Dysphagia [Unknown]
  - Pharyngeal ulceration [Unknown]
  - Dysphonia [Unknown]
  - Arthralgia [Unknown]
  - Fatigue [Unknown]
  - Stomatitis [Unknown]
